FAERS Safety Report 6897434-2 (Version None)
Quarter: 2010Q3

REPORT INFORMATION
  Report Type: 
  Country: None (occurrence: None)
  Receive Date: 20100729
  Receipt Date: 20100714
  Transmission Date: 20110219
  Serious: Yes (Other)
  Sender: FDA-Public Use
  Company Number: 2010US-35969

PATIENT
  Age: 54 Year
  Sex: Male

DRUGS (2)
  1. VERAPAMIL [Suspect]
     Indication: ANGINA UNSTABLE
     Dosage: 120 MG TID
  2. METOPROLOL SUCCINATE [Suspect]
     Indication: ANGINA PECTORIS
     Dosage: 100 MG, BID

REACTIONS (7)
  - BRADYCARDIA [None]
  - CARDIAC FAILURE [None]
  - CONFUSIONAL STATE [None]
  - DRUG INTERACTION [None]
  - HYPERHIDROSIS [None]
  - HYPOTENSION [None]
  - NODAL RHYTHM [None]
